FAERS Safety Report 7627060-9 (Version None)
Quarter: 2011Q3

REPORT INFORMATION
  Report Type: 
  Country: None (occurrence: None)
  Receive Date: 20110721
  Receipt Date: 20110713
  Transmission Date: 20111222
  Serious: Yes (Other)
  Sender: FDA-Public Use
  Company Number: AU-AMGEN-AUSCT2011035938

PATIENT
  Age: 81 Year
  Sex: Male

DRUGS (7)
  1. IRBESARTAN [Concomitant]
     Dosage: 150 MG, QD
  2. CALCIUM CARBONATE [Concomitant]
     Dosage: UNK UNK, QD
  3. ALLOPURINOL [Concomitant]
     Dosage: 300 MG, QD
  4. TRAMADOL HCL [Concomitant]
  5. DENOSUMAB [Suspect]
     Indication: PROSTATE CANCER
     Dosage: 60 MG, UNK
  6. SYMBICORT [Concomitant]
     Dosage: UNK UNK, BID
  7. CHOLECALCIFEROL [Concomitant]

REACTIONS (1)
  - EXPOSED BONE IN JAW [None]
